FAERS Safety Report 23769835 (Version 1)
Quarter: 2024Q2

REPORT INFORMATION
  Report Type: Spontaneous
  Country: FR (occurrence: FR)
  Receive Date: 20240422
  Receipt Date: 20240422
  Transmission Date: 20240716
  Serious: Yes (Death, Other)
  Sender: FDA-Public Use
  Company Number: FR-PFIZER INC-2005016149

PATIENT
  Age: 90 Year
  Sex: Female

DRUGS (12)
  1. VENLAFAXINE HYDROCHLORIDE [Interacting]
     Active Substance: VENLAFAXINE HYDROCHLORIDE
     Indication: Ill-defined disorder
     Dosage: 37.5 MILLIGRAM, QD (37.5 MG, DAILY)
     Route: 048
     Dates: end: 20041031
  2. FLUINDIONE [Interacting]
     Active Substance: FLUINDIONE
     Indication: Ill-defined disorder
     Dosage: 5 MILLIGRAM, QD (5 MG, 1X/DAY)
     Route: 048
     Dates: start: 20041007, end: 20041102
  3. FLUINDIONE [Interacting]
     Active Substance: FLUINDIONE
     Dosage: 20 MILLIGRAM, QD (20 MG, DAILY)
     Route: 048
     Dates: start: 20041007, end: 20041103
  4. OMEPRAZOLE [Interacting]
     Active Substance: OMEPRAZOLE
     Indication: Product used for unknown indication
     Dosage: 20 MILLIGRAM, QD (20 MG, DAILY)
     Route: 048
     Dates: start: 20041031, end: 20041103
  5. OFLOXACIN [Interacting]
     Active Substance: OFLOXACIN
     Indication: Ill-defined disorder
     Dosage: 200 MILLIGRAM, QD (200 MG, 1X/DAY)
     Route: 042
     Dates: start: 20041031, end: 20041110
  6. PERFALGAN [Interacting]
     Active Substance: ACETAMINOPHEN
     Indication: Ill-defined disorder
     Dosage: UNKNOWN
     Route: 042
     Dates: start: 20041031, end: 20041101
  7. SOLU-MEDROL [Interacting]
     Active Substance: METHYLPREDNISOLONE SODIUM SUCCINATE
     Indication: Ill-defined disorder
     Dosage: 40 MILLIGRAM, QD (40 MG, DAILY)
     Route: 042
     Dates: start: 20041031, end: 20041103
  8. Temesta [Concomitant]
     Indication: Product used for unknown indication
     Dosage: 1 MILLIGRAM
     Route: 048
  9. ASPIRIN DL-LYSINE [Concomitant]
     Active Substance: ASPIRIN DL-LYSINE
     Indication: Product used for unknown indication
     Dosage: UNKNOWN
     Route: 065
  10. TIAPRIDE HYDROCHLORIDE [Concomitant]
     Active Substance: TIAPRIDE HYDROCHLORIDE
     Indication: Product used for unknown indication
     Dosage: ON REQUEST
     Route: 065
  11. NITROGLYCERIN [Concomitant]
     Active Substance: NITROGLYCERIN
     Indication: Product used for unknown indication
     Dosage: UNKNOWN
     Route: 065
  12. CLAVULANIC ACID [Concomitant]
     Active Substance: CLAVULANIC ACID
     Dosage: UNK
     Route: 065

REACTIONS (11)
  - Gastrointestinal haemorrhage [Fatal]
  - Dehydration [Fatal]
  - Bronchitis [Fatal]
  - Prothrombin level decreased [Fatal]
  - Drug interaction [Fatal]
  - Deep vein thrombosis [Unknown]
  - Pulmonary embolism [Unknown]
  - Pulmonary oedema [Unknown]
  - Respiratory distress [Unknown]
  - Blood pressure systolic decreased [Unknown]
  - International normalised ratio increased [Unknown]

NARRATIVE: CASE EVENT DATE: 20041101
